FAERS Safety Report 4758753-9 (Version None)
Quarter: 2005Q3

REPORT INFORMATION
  Report Type: 
  Country: None (occurrence: None)
  Receive Date: 20050831
  Receipt Date: 20050831
  Transmission Date: 20060218
  Serious: Yes (Hospitalization)
  Sender: FDA-Public Use
  Company Number: None

PATIENT
  Age: 49 Year
  Sex: Male

DRUGS (5)
  1. PEG-INTRON [Suspect]
     Dosage: 150 MCG
     Dates: start: 20050616
  2. REBETOL [Suspect]
     Dosage: 1200 MG
     Dates: start: 20050616
  3. DILTIAZEM [Concomitant]
  4. ASPIRIN [Concomitant]
  5. COUMADIN [Concomitant]

REACTIONS (8)
  - CHEST DISCOMFORT [None]
  - CHILLS [None]
  - DYSPNOEA [None]
  - HEADACHE [None]
  - INJECTION SITE ERYTHEMA [None]
  - INJECTION SITE PRURITUS [None]
  - MYALGIA [None]
  - PYREXIA [None]
